FAERS Safety Report 8334534-4 (Version None)
Quarter: 2012Q2

REPORT INFORMATION
  Report Type: 
  Country: None (occurrence: None)
  Receive Date: 20120503
  Receipt Date: 20120425
  Transmission Date: 20120825
  Serious: Yes (Death, Hospitalization, Other)
  Sender: FDA-Public Use
  Company Number: DE-AMGEN-DEUSP2012018638

PATIENT
  Age: 87 Year
  Sex: Female

DRUGS (8)
  1. NEULASTA [Suspect]
     Indication: LEUKOCYTOSIS
  2. NEUPOGEN [Suspect]
     Indication: LEUKOPENIA
     Dosage: UNK
     Route: 058
     Dates: start: 20100710
  3. NEUPOGEN [Suspect]
     Indication: LEUKOCYTOSIS
  4. CORTISONE ACETATE [Concomitant]
     Indication: POLYARTHRITIS
     Dosage: UNK
  5. EUNERPAN [Concomitant]
     Dosage: 5 ML, UNK
  6. NEULASTA [Suspect]
     Indication: LEUKOPENIA
     Dosage: 6 MG, UNK
     Route: 058
     Dates: start: 20100712, end: 20100717
  7. METHOTREXATE [Concomitant]
     Dosage: 1 MG, QD
     Dates: start: 20100630, end: 20100710
  8. VANCOMYCIN [Concomitant]
     Indication: PSEUDOMEMBRANOUS COLITIS
     Route: 048

REACTIONS (18)
  - ACUTE HEPATIC FAILURE [None]
  - ANURIA [None]
  - RASH ERYTHEMATOUS [None]
  - PNEUMONIA BACTERIAL [None]
  - CAPILLARY LEAK SYNDROME [None]
  - HAEMATOMA [None]
  - RENAL FAILURE CHRONIC [None]
  - PANCYTOPENIA [None]
  - FEBRILE INFECTION [None]
  - SEPSIS [None]
  - COAGULOPATHY [None]
  - LEUKOCYTOSIS [None]
  - SINUSITIS [None]
  - SEBORRHOEIC DERMATITIS [None]
  - OVERDOSE [None]
  - TOXICITY TO VARIOUS AGENTS [None]
  - ANAEMIA [None]
  - THROMBOCYTOPENIA [None]
